FAERS Safety Report 11621628 (Version 2)
Quarter: 2015Q4

REPORT INFORMATION
  Report Type: Spontaneous
  Country: US (occurrence: US)
  Receive Date: 20151013
  Receipt Date: 20151105
  Transmission Date: 20160304
  Serious: No
  Sender: FDA-Public Use
  Company Number: US-009507513-1510USA005257

PATIENT
  Age: 14 Year
  Sex: Female

DRUGS (1)
  1. NEXPLANON [Suspect]
     Active Substance: ETONOGESTREL
     Indication: CONTRACEPTION
     Dosage: UNK, IN RIGHT ARM
     Route: 059
     Dates: start: 20150916

REACTIONS (2)
  - Medical device complication [Not Recovered/Not Resolved]
  - Implant site hypersensitivity [Unknown]

NARRATIVE: CASE EVENT DATE: 2015
